FAERS Safety Report 8224170-2 (Version None)
Quarter: 2012Q1

REPORT INFORMATION
  Report Type: 
  Country: None (occurrence: None)
  Receive Date: 20120321
  Receipt Date: 20120309
  Transmission Date: 20120608
  Serious: Yes (Hospitalization)
  Sender: FDA-Public Use
  Company Number: FR-SANOFI-AVENTIS-2012SA015953

PATIENT
  Age: 81 Year
  Sex: Female

DRUGS (3)
  1. PREDNISOLONE [Concomitant]
     Indication: BRONCHITIS
  2. ACETYLCYSTEINE [Concomitant]
     Indication: BRONCHITIS
  3. CLAFORAN [Suspect]
     Indication: BRONCHITIS
     Dosage: DOSE:1 UNIT(S)
     Route: 042
     Dates: start: 20111225, end: 20120101

REACTIONS (1)
  - ACUTE GENERALISED EXANTHEMATOUS PUSTULOSIS [None]
